FAERS Safety Report 9828414 (Version 3)
Quarter: 2017Q1

REPORT INFORMATION
  Report Type: Spontaneous
  Country: US (occurrence: US)
  Receive Date: 20140117
  Receipt Date: 20170209
  Transmission Date: 20170429
  Serious: Yes (Death)
  Sender: FDA-Public Use
  Company Number: US-PFIZER INC-2014007793

PATIENT
  Age: 44 Year
  Sex: Male

DRUGS (8)
  1. CODEINE [Suspect]
     Active Substance: CODEINE
     Dosage: UNK
  2. HEROIN [Suspect]
     Active Substance: DIACETYLMORPHINE
     Dosage: UNK
  3. COCAINE [Suspect]
     Active Substance: COCAINE
     Dosage: UNK
  4. TOPIRAMATE. [Suspect]
     Active Substance: TOPIRAMATE
     Dosage: UNK
  5. OLANZAPINE. [Suspect]
     Active Substance: OLANZAPINE
     Dosage: UNK
  6. DEXTROMETHORPHAN HYDROBROMIDE. [Suspect]
     Active Substance: DEXTROMETHORPHAN HYDROBROMIDE
     Dosage: UNK
  7. DILTIAZEM HCL [Suspect]
     Active Substance: DILTIAZEM HYDROCHLORIDE
     Dosage: UNK
  8. METHADONE [Suspect]
     Active Substance: METHADONE HYDROCHLORIDE
     Dosage: UNK

REACTIONS (2)
  - Toxicity to various agents [Fatal]
  - Drug abuse [Fatal]

NARRATIVE: CASE EVENT DATE: 2012
